FAERS Safety Report 5296846-0 (Version None)
Quarter: 2007Q1

REPORT INFORMATION
  Report Type: 
  Country: None (occurrence: None)
  Receive Date: 20070201
  Receipt Date: 20061004
  Transmission Date: 20070707
  Serious: No
  Sender: FDA-Public Use
  Company Number: 2006PV022516

PATIENT
  Age: 74 Year
  Sex: Female
  Weight: 87.0906 kg

DRUGS (1)
  1. BYETTA [Suspect]
     Indication: DIABETES MELLITUS NON-INSULIN-DEPENDENT
     Dosage: 5 MCG;BID;SC
     Route: 058
     Dates: start: 20060905

REACTIONS (4)
  - DRY SKIN [None]
  - HEADACHE [None]
  - PRURITUS [None]
  - THERAPEUTIC RESPONSE UNEXPECTED [None]
